FAERS Safety Report 8113426-X (Version None)
Quarter: 2012Q1

REPORT INFORMATION
  Report Type: 
  Country: None (occurrence: None)
  Receive Date: 20120203
  Receipt Date: 20120131
  Transmission Date: 20120608
  Serious: Yes (Death)
  Sender: FDA-Public Use
  Company Number: PHHY2012NL008537

PATIENT

DRUGS (2)
  1. DICLOFENAC [Suspect]
     Indication: ABDOMINAL PAIN
  2. NICOTINAMIDE [Concomitant]
     Dosage: 60 MG/KG, UNK

REACTIONS (1)
  - GASTRIC HAEMORRHAGE [None]
